FAERS Safety Report 5897028-1 (Version None)
Quarter: 2008Q3

REPORT INFORMATION
  Report Type: 
  Country: None (occurrence: None)
  Receive Date: 20080924
  Receipt Date: 20080222
  Transmission Date: 20090109
  Serious: Yes (Other)
  Sender: FDA-Public Use
  Company Number: US-ASTRAZENECA-2008UW03898

PATIENT
  Age: 18 Year
  Sex: Female

DRUGS (7)
  1. SEROQUEL XR [Suspect]
     Route: 048
     Dates: start: 20071201
  2. SEROQUEL XR [Suspect]
     Route: 048
     Dates: start: 20080101
  3. SEROQUEL XR [Suspect]
     Route: 048
     Dates: start: 20080101
  4. LAMICTAL [Concomitant]
  5. LITHIUM CARBONATE [Concomitant]
  6. KEPPRA [Concomitant]
  7. LEXAPRO [Concomitant]

REACTIONS (1)
  - CONVULSION [None]
